FAERS Safety Report 4996976-4 (Version None)
Quarter: 2006Q2

REPORT INFORMATION
  Report Type: 
  Country: None (occurrence: None)
  Receive Date: 20060509
  Receipt Date: 20060502
  Transmission Date: 20061013
  Serious: Yes (Hospitalization)
  Sender: FDA-Public Use
  Company Number: US-JNJFOC-20060201097

PATIENT
  Sex: Female
  Weight: 106.6 kg

DRUGS (2)
  1. REMICADE [Suspect]
     Indication: RHEUMATOID ARTHRITIS
     Dosage: 3 VIALS, 3 TREATMENTS RECEIVED
     Route: 042
  2. PLAQUENIL [Concomitant]

REACTIONS (1)
  - APPENDICITIS PERFORATED [None]
